FAERS Safety Report 9884995 (Version 2)
Quarter: 2014Q2

REPORT INFORMATION
  Report Type: Report from Study
  Country: DE (occurrence: DE)
  Receive Date: 20140210
  Receipt Date: 20140520
  Transmission Date: 20141212
  Serious: Yes (Hospitalization, Other)
  Sender: FDA-Public Use
  Company Number: DE-JNJFOC-20140201664

PATIENT
  Age: 52 Year
  Sex: Female
  Weight: 57 kg

DRUGS (17)
  1. SIMPONI [Suspect]
     Indication: RHEUMATOID ARTHRITIS
     Route: 058
     Dates: start: 201301, end: 20130614
  2. SIMPONI [Suspect]
     Indication: RHEUMATOID ARTHRITIS
     Route: 058
     Dates: start: 20131103, end: 20131203
  3. METHOTREXATE [Concomitant]
     Indication: RHEUMATOID ARTHRITIS
     Route: 065
  4. METHOTREXATE [Concomitant]
     Indication: RHEUMATOID ARTHRITIS
     Route: 065
  5. METHOTREXATE [Concomitant]
     Indication: RHEUMATOID ARTHRITIS
     Route: 065
  6. METHOTREXATE [Concomitant]
     Indication: RHEUMATOID ARTHRITIS
     Route: 065
  7. METHOTREXATE [Concomitant]
     Indication: RHEUMATOID ARTHRITIS
     Route: 065
  8. METHOTREXATE [Concomitant]
     Indication: RHEUMATOID ARTHRITIS
     Route: 065
  9. METHOTREXATE [Concomitant]
     Indication: RHEUMATOID ARTHRITIS
     Route: 065
     Dates: start: 200606
  10. PREDNISOLON [Concomitant]
     Route: 065
  11. FOLSAURE [Concomitant]
     Route: 065
  12. DEKRISTOL [Concomitant]
     Dosage: 20.000 IE
     Route: 065
  13. CALCIUM [Concomitant]
     Route: 065
  14. OXYCODON [Concomitant]
     Dosage: 2X 10 MG
     Route: 065
     Dates: start: 201212, end: 201307
  15. VENLAFAXINE HCL [Concomitant]
     Dosage: 150-0-75
     Route: 065
  16. ATACAND [Concomitant]
     Dosage: 16/12,5 1-0-0
     Route: 065
  17. SIMVA [Concomitant]
     Dosage: 20
     Route: 065

REACTIONS (2)
  - Depression [Unknown]
  - Tooth abscess [Not Recovered/Not Resolved]
